FAERS Safety Report 19128986 (Version 1)
Quarter: 2021Q2

REPORT INFORMATION
  Report Type: Spontaneous
  Country: US (occurrence: US)
  Receive Date: 20210413
  Receipt Date: 20210413
  Transmission Date: 20210717
  Serious: No
  Sender: FDA-Public Use
  Company Number: US-009507513-2103USA004792

PATIENT
  Sex: Male

DRUGS (2)
  1. DECADRON [Suspect]
     Active Substance: DEXAMETHASONE
     Indication: RASH PRURITIC
     Dosage: 6 MILLIGRAM, ONCE
     Route: 048
     Dates: start: 20210310
  2. DECADRON [Suspect]
     Active Substance: DEXAMETHASONE
     Indication: RASH

REACTIONS (2)
  - Drug effect less than expected [Unknown]
  - Incorrect route of product administration [Unknown]

NARRATIVE: CASE EVENT DATE: 20210310
